FAERS Safety Report 5200903-4 (Version None)
Quarter: 2007Q1

REPORT INFORMATION
  Report Type: 
  Country: None (occurrence: None)
  Receive Date: 20070108
  Receipt Date: 20061207
  Transmission Date: 20070707
  Serious: Yes (Other)
  Sender: FDA-Public Use
  Company Number: FR-AVENTIS-200613553FR

PATIENT
  Age: 29 Year
  Sex: Female

DRUGS (4)
  1. KETEK [Suspect]
     Indication: SINUSITIS
     Route: 048
     Dates: start: 20060928, end: 20061001
  2. KETEK [Suspect]
     Indication: NASOPHARYNGITIS
     Route: 048
     Dates: start: 20060928, end: 20061001
  3. PNEUMOREL [Concomitant]
     Indication: SINUSITIS
     Route: 048
     Dates: start: 20060930, end: 20061001
  4. PNEUMOREL [Concomitant]
     Indication: NASOPHARYNGITIS
     Route: 048
     Dates: start: 20060930, end: 20061001

REACTIONS (2)
  - ABORTION SPONTANEOUS [None]
  - DRUG EXPOSURE DURING PREGNANCY [None]
